FAERS Safety Report 5474892-1 (Version None)
Quarter: 2007Q3

REPORT INFORMATION
  Report Type: 
  Country: None (occurrence: None)
  Receive Date: 20070801
  Receipt Date: 20070330
  Transmission Date: 20080115
  Serious: No
  Sender: FDA-Public Use
  Company Number: 239231

PATIENT
  Sex: Female

DRUGS (4)
  1. LUCENTIS [Suspect]
     Indication: MACULAR DEGENERATION
     Dosage: INTRAVITREAL
     Dates: start: 20070201
  2. OCULAR VITAMIN NOS (VITAMINS NOS) [Concomitant]
  3. MULTIVITAMIN (MULTIVITAMINS NOS) [Concomitant]
  4. ASCORBIC ACID [Concomitant]

REACTIONS (1)
  - FLATULENCE [None]
